FAERS Safety Report 8413362-5 (Version None)
Quarter: 2012Q2

REPORT INFORMATION
  Report Type: 
  Country: None (occurrence: None)
  Receive Date: 20120605
  Receipt Date: 20120529
  Transmission Date: 20120825
  Serious: Yes (Death, Hospitalization)
  Sender: FDA-Public Use
  Company Number: US-CELGENEUS-163-21660-12053736

PATIENT
  Age: 56 Year

DRUGS (4)
  1. CARBOPLATIN [Suspect]
     Route: 041
  2. ABRAXANE [Suspect]
     Dosage: 100 MILLIGRAM/SQ. METER
     Route: 041
     Dates: start: 20070101
  3. CARBOPLATIN [Suspect]
     Route: 041
     Dates: start: 20070101
  4. ABRAXANE [Suspect]

REACTIONS (3)
  - ANAEMIA [None]
  - UROSEPSIS [None]
  - NEUTROPENIA [None]
